FAERS Safety Report 9864147 (Version 2)
Quarter: 2016Q2

REPORT INFORMATION
  Report Type: Spontaneous
  Country: FR (occurrence: FR)
  Receive Date: 20140203
  Receipt Date: 20160630
  Transmission Date: 20160815
  Serious: Yes (Hospitalization)
  Sender: FDA-Public Use
  Company Number: FR-PFIZER INC-2014029071

PATIENT
  Age: 83 Year
  Sex: Female

DRUGS (20)
  1. PREVISCAN [Concomitant]
     Active Substance: FLUINDIONE
     Dosage: 20 MG, UNK
  2. DAFALGAN [Concomitant]
     Active Substance: ACETAMINOPHEN
     Dosage: 500 MG, UNK
  3. DIFFU K [Concomitant]
     Active Substance: POTASSIUM CHLORIDE
  4. SMECTA [Concomitant]
     Active Substance: MONTMORILLONITE
  5. FURADANTINE [Suspect]
     Active Substance: NITROFURANTOIN
     Indication: CYSTITIS-LIKE SYMPTOM
     Dosage: 50 MG, 2 EVERY 8 HOURS
     Route: 048
     Dates: start: 20131127, end: 20131129
  6. TIENAM [Suspect]
     Active Substance: CILASTATIN SODIUM\IMIPENEM
     Indication: PYELONEPHRITIS
     Dosage: 500 MG, 4X/DAY
     Route: 042
     Dates: start: 20131129, end: 20131209
  7. FUNGIZONE 10 PER CENT [Concomitant]
  8. LYRICA [Suspect]
     Active Substance: PREGABALIN
     Indication: SCIATICA
     Dosage: 25 MG, 3X/DAY
     Route: 048
     Dates: start: 20131122, end: 20131220
  9. SPECIAFOLDINE [Concomitant]
     Active Substance: FOLIC ACID
     Dosage: 5 MG, UNK
  10. DIPROSONE 0.05 PER CENT [Concomitant]
  11. DEROXAT [Concomitant]
     Active Substance: PAROXETINE HYDROCHLORIDE
     Dosage: 20 MG, UNK
  12. IMOVANE [Concomitant]
     Active Substance: ZOPICLONE
     Dosage: 7.5 MG, UNK
  13. CERIS [Concomitant]
     Active Substance: TROSPIUM CHLORIDE
     Dosage: 20 MG, UNK
  14. LASILIX [Concomitant]
     Active Substance: FUROSEMIDE
     Dosage: 40 MG, UNK
  15. TARDYFERON [Concomitant]
     Active Substance: FERROUS SULFATE\FOLIC ACID
     Dosage: 80 MG, UNK
  16. FORLAX [Concomitant]
     Active Substance: POLYETHYLENE GLYCOL 4000
     Dosage: 10 G, UNK
  17. KARDEGIC [Concomitant]
     Active Substance: ASPIRIN LYSINE
     Dosage: 75 MG, UNK
  18. TOPALGIC [Concomitant]
     Active Substance: TRAMADOL
  19. ACUPAN [Concomitant]
     Active Substance: NEFOPAM HYDROCHLORIDE
  20. TOPALGIC LP [Concomitant]
     Active Substance: TRAMADOL
     Dosage: 100 MG, UNK

REACTIONS (1)
  - Pancytopenia [Unknown]

NARRATIVE: CASE EVENT DATE: 20131210
